FAERS Safety Report 7117458 (Version 2)
Quarter: 2018Q4

REPORT INFORMATION
  Report Type: Spontaneous
  Country: GB (occurrence: GB)
  Receive Date: 20090917
  Receipt Date: 20181219
  Transmission Date: 20190205
  Serious: Yes (Other)
  Sender: FDA-Public Use
  Company Number: GB-LLY01-GB200609004685

PATIENT
  Age: 23 Year
  Sex: Female
  Weight: 58 kg

DRUGS (4)
  1. CO-DYDRAMOL [Concomitant]
     Active Substance: ACETAMINOPHEN\DIHYDROCODEINE
     Indication: ANALGESIC THERAPY
     Dosage: UNK, UNKNOWN
     Route: 048
     Dates: start: 20060809, end: 20060811
  2. ZYPREXA [Suspect]
     Active Substance: OLANZAPINE
     Indication: AGITATION
     Dosage: 10 MG, UNKNOWN
     Route: 048
     Dates: start: 20060801, end: 20060815
  3. ZYPREXA [Suspect]
     Active Substance: OLANZAPINE
     Indication: HALLUCINATION, AUDITORY
     Dosage: 2.5 MG, DAILY (1/D)
     Route: 048
     Dates: start: 20060711, end: 20060814
  4. DIANETTE [Concomitant]
     Active Substance: CYPROTERONE ACETATE\ETHINYL ESTRADIOL
     Indication: CONTRACEPTION
     Dosage: 1 D/F, DAILY (1/D)
     Route: 048
     Dates: start: 2005

REACTIONS (4)
  - Pruritus generalised [Recovered/Resolved]
  - Intentional product misuse [Recovered/Resolved]
  - Akathisia [Recovering/Resolving]
  - Self-injurious ideation [Unknown]

NARRATIVE: CASE EVENT DATE: 20060711
